FAERS Safety Report 7487115-9 (Version None)
Quarter: 2011Q2

REPORT INFORMATION
  Report Type: 
  Country: None (occurrence: None)
  Receive Date: 20110510
  Receipt Date: 20110425
  Transmission Date: 20111010
  Serious: Yes (Other)
  Sender: FDA-Public Use
  Company Number: AUR-APL-2011-01489

PATIENT
  Age: 73 Year
  Sex: Male

DRUGS (7)
  1. SIMVASTATIN [Suspect]
     Dosage: 80MG-DAILY
  2. PREDNISONE [Concomitant]
  3. LABETALOL [Concomitant]
  4. AZITHROMYCIN [Suspect]
     Indication: BRONCHITIS
     Dosage: 500MG-DAILY
  5. AZITHROMYCIN [Suspect]
     Indication: BRONCHITIS
     Dosage: 250MG-DAILY
  6. BUMETANIDE [Concomitant]
  7. ALLOPURINOL [Concomitant]

REACTIONS (4)
  - DRUG INTERACTION [None]
  - BRONCHITIS [None]
  - BLOOD CREATININE INCREASED [None]
  - RHABDOMYOLYSIS [None]
